FAERS Safety Report 24362275 (Version 1)
Quarter: 2024Q3

REPORT INFORMATION
  Report Type: Spontaneous
  Country: US (occurrence: None)
  Receive Date: 20240925
  Receipt Date: 20240925
  Transmission Date: 20241016
  Serious: Yes (Life-Threatening, Hospitalization, Other)
  Sender: Public
  Company Number: None

PATIENT
  Age: 31 Year
  Sex: Female
  Weight: 70.65 kg

DRUGS (3)
  1. BRENTUXIMAB [Suspect]
     Active Substance: BRENTUXIMAB
     Indication: Hodgkin^s disease
     Dosage: OTHER STRENGTH : 1.8;?OTHER QUANTITY : 1.8 INJECTION(S);?OTHER FREQUENCY : EVERY 3 WEEKS;?
     Route: 042
  2. Bard Power Port [Concomitant]
  3. IBUPROFEN [Concomitant]
     Active Substance: IBUPROFEN

REACTIONS (3)
  - Infusion related reaction [None]
  - Hypersensitivity [None]
  - Cardiac arrest [None]

NARRATIVE: CASE EVENT DATE: 20240920
